FAERS Safety Report 25278917 (Version 4)
Quarter: 2025Q3

REPORT INFORMATION
  Report Type: Spontaneous
  Country: US (occurrence: US)
  Receive Date: 20250507
  Receipt Date: 20250909
  Transmission Date: 20251020
  Serious: Yes (Hospitalization, Other)
  Sender: DOMPE FARMACEUTICI
  Company Number: US-FARMAPROD-202503-1034

PATIENT
  Age: 75 Year
  Sex: Female

DRUGS (22)
  1. OXERVATE [Suspect]
     Active Substance: CENEGERMIN-BKBJ
     Indication: Neurotrophic keratopathy
     Route: 047
     Dates: start: 20250305
  2. OXERVATE [Suspect]
     Active Substance: CENEGERMIN-BKBJ
  3. OXERVATE [Suspect]
     Active Substance: CENEGERMIN-BKBJ
  4. OXERVATE [Suspect]
     Active Substance: CENEGERMIN-BKBJ
  5. CIPRO [Concomitant]
     Active Substance: CIPROFLOXACIN HYDROCHLORIDE
  6. BIOTIN [Concomitant]
     Active Substance: BIOTIN
  7. LANSOPRAZOLE [Concomitant]
     Active Substance: LANSOPRAZOLE
  8. EXCEDRIN TENSION HEADACHE [Concomitant]
     Active Substance: ACETAMINOPHEN\CAFFEINE
  9. TRAMADOL HCL [Concomitant]
     Active Substance: TRAMADOL HYDROCHLORIDE
  10. PEPCID [Concomitant]
     Active Substance: FAMOTIDINE
  11. VITAMIN D-400 [Concomitant]
  12. NERVIVE PAIN RELIEVING [Concomitant]
  13. VITAMIN B12 [Concomitant]
     Active Substance: CYANOCOBALAMIN
  14. VITAMIN E [Concomitant]
     Active Substance: .ALPHA.-TOCOPHEROL
  15. VITAMIN C [Concomitant]
     Active Substance: ASCORBIC ACID
  16. ALLEGRA ALLERGY [Concomitant]
     Active Substance: FEXOFENADINE HYDROCHLORIDE
  17. ERYTHROMYCIN [Concomitant]
     Active Substance: ERYTHROMYCIN
  18. DULOXETINE HYDROCHLORIDE [Concomitant]
     Active Substance: DULOXETINE HYDROCHLORIDE
  19. PREDNISONE [Concomitant]
     Active Substance: PREDNISONE
  20. METHOTREXATE [Concomitant]
     Active Substance: METHOTREXATE
  21. MIEBO [Concomitant]
     Active Substance: PERFLUOROHEXYLOCTANE
  22. RINVOQ [Concomitant]
     Active Substance: UPADACITINIB

REACTIONS (10)
  - Compression fracture [Unknown]
  - Hospitalisation [Unknown]
  - Product administration error [Unknown]
  - Product storage error [Unknown]
  - Product dose omission issue [Not Recovered/Not Resolved]
  - Herpes zoster [Unknown]
  - Fall [Unknown]
  - Pain in extremity [Unknown]
  - Therapy interrupted [Unknown]
  - Intraocular pressure increased [Unknown]

NARRATIVE: CASE EVENT DATE: 20250422
